FAERS Safety Report 5957346-5 (Version None)
Quarter: 2008Q4

REPORT INFORMATION
  Report Type: 
  Country: None (occurrence: None)
  Receive Date: 20081118
  Receipt Date: 20081111
  Transmission Date: 20090506
  Serious: Yes (Hospitalization)
  Sender: FDA-Public Use
  Company Number: JP-AMGEN-US309295

PATIENT
  Sex: Female
  Weight: 56 kg

DRUGS (5)
  1. ENBREL [Suspect]
     Indication: RHEUMATOID ARTHRITIS
     Route: 058
     Dates: start: 20051027, end: 20080630
  2. LORCAM [Concomitant]
     Route: 048
  3. PREDNISOLONE [Concomitant]
     Route: 048
     Dates: start: 20051001, end: 20080630
  4. AZULFIDINE EN-TABS [Concomitant]
     Route: 048
     Dates: start: 20051001, end: 20080630
  5. RIMATIL [Concomitant]
     Route: 048
     Dates: start: 20051001, end: 20080630

REACTIONS (5)
  - CONTUSION [None]
  - FALL [None]
  - MYCOBACTERIUM AVIUM COMPLEX INFECTION [None]
  - PLEURAL EFFUSION [None]
  - PYOTHORAX [None]
